FAERS Safety Report 6288761-0 (Version None)
Quarter: 2009Q3

REPORT INFORMATION
  Report Type: 
  Country: None (occurrence: None)
  Receive Date: 20090729
  Receipt Date: 20090723
  Transmission Date: 20100115
  Serious: Yes (Death, Congenital Anomaly)
  Sender: FDA-Public Use
  Company Number: GB-GILEAD-2009-0023290

PATIENT

DRUGS (2)
  1. TRUVADA [Suspect]
     Indication: HIV INFECTION
     Route: 064
  2. PREZISTA [Suspect]
     Route: 064

REACTIONS (1)
  - CARDIAC DISORDER [None]
